FAERS Safety Report 13795892 (Version 1)
Quarter: 2017Q3

REPORT INFORMATION
  Report Type: Spontaneous
  Country: US (occurrence: US)
  Receive Date: 20170726
  Receipt Date: 20170726
  Transmission Date: 20171127
  Serious: No
  Sender: FDA-Public Use
  Company Number: US-MEDA-2017070031

PATIENT
  Sex: Female

DRUGS (1)
  1. BUTABARBITAL [Suspect]
     Active Substance: BUTABARBITAL

REACTIONS (1)
  - Rash [Unknown]
